FAERS Safety Report 23992026 (Version 2)
Quarter: 2024Q3

REPORT INFORMATION
  Report Type: Spontaneous
  Country: CN (occurrence: CN)
  Receive Date: 20240620
  Receipt Date: 20240701
  Transmission Date: 20241017
  Serious: Yes (Life-Threatening, Hospitalization, Other)
  Sender: ROCHE
  Company Number: CN-BoehringerIngelheim-2024-BI-032568

PATIENT
  Age: 97 Year
  Sex: Female
  Weight: 51.0 kg

DRUGS (2)
  1. ALTEPLASE [Suspect]
     Active Substance: ALTEPLASE
     Indication: Cerebral infarction
     Route: 042
     Dates: start: 20240508, end: 20240508
  2. ALTEPLASE [Suspect]
     Active Substance: ALTEPLASE
     Route: 042
     Dates: start: 20240508, end: 20240508

REACTIONS (5)
  - Cerebral haemorrhage [Recovering/Resolving]
  - Coma [Recovering/Resolving]
  - Pupillary reflex impaired [Recovering/Resolving]
  - Staring [Recovering/Resolving]
  - Off label use [Unknown]

NARRATIVE: CASE EVENT DATE: 20240508
